FAERS Safety Report 20691537 (Version 3)
Quarter: 2022Q2

REPORT INFORMATION
  Report Type: Spontaneous
  Country: US (occurrence: US)
  Receive Date: 20220408
  Receipt Date: 20220628
  Transmission Date: 20220721
  Serious: Yes (Other)
  Sender: FDA-Public Use
  Company Number: US-PFIZER INC-202200483808

PATIENT
  Age: 64 Year
  Sex: Female

DRUGS (1)
  1. GENOTROPIN [Suspect]
     Active Substance: SOMATROPIN
     Dosage: 0.2 MG, DAILY

REACTIONS (9)
  - Mental impairment [Unknown]
  - Pain [Unknown]
  - Cognitive disorder [Unknown]
  - Mood altered [Unknown]
  - Quality of life decreased [Unknown]
  - Vertigo [Unknown]
  - Limb injury [Recovered/Resolved]
  - Neck injury [Unknown]
  - Device use issue [Unknown]
